FAERS Safety Report 4689654-2 (Version None)
Quarter: 2005Q2

REPORT INFORMATION
  Report Type: 
  Country: None (occurrence: None)
  Receive Date: 20050608
  Receipt Date: 20050307
  Transmission Date: 20051028
  Serious: No
  Sender: FDA-Public Use
  Company Number: 2005-BP-03569BP

PATIENT
  Age: 84 Year
  Sex: Male

DRUGS (17)
  1. SPIRIVA [Suspect]
     Indication: CHRONIC OBSTRUCTIVE PULMONARY DISEASE
     Dosage: 18 MCG (18 MCG, QD), IH
     Route: 055
     Dates: start: 20040101
  2. MIACALCIN [Concomitant]
  3. COUMADIN [Concomitant]
  4. TOPROL-XL [Concomitant]
  5. ALTACE [Concomitant]
  6. FUROSEMIDE [Concomitant]
  7. PROCARDIA [Concomitant]
  8. PRAVACHOL [Concomitant]
  9. MIRALAX [Concomitant]
  10. ADVODART [Concomitant]
  11. UROXATRAL [Concomitant]
  12. VIAGRA [Concomitant]
  13. CIPROFLOXACIN [Concomitant]
  14. NITROSTAT [Concomitant]
  15. PRILOSEC [Concomitant]
  16. ZYRTEC [Concomitant]
  17. I-CAPS VITAMINS FOR EYES [Concomitant]

REACTIONS (1)
  - DRY MOUTH [None]
